FAERS Safety Report 10835974 (Version 1)
Quarter: 2015Q1

REPORT INFORMATION
  Report Type: Spontaneous
  Country: US (occurrence: None)
  Receive Date: 20150218
  Receipt Date: 20150218
  Transmission Date: 20150721
  Serious: Yes (Death)
  Sender: FDA-Public Use
  Company Number: NSR_01899_2015

PATIENT
  Age: 38 Year
  Sex: Female

DRUGS (3)
  1. PROPRANOL [Suspect]
     Active Substance: PROPRANOLOL HYDROCHLORIDE
     Indication: PRODUCT USED FOR UNKNOWN INDICATION
     Dosage: DF, ORAL
     Route: 048
  2. AMPHETAMINE [Suspect]
     Active Substance: AMPHETAMINE
     Indication: PRODUCT USED FOR UNKNOWN INDICATION
     Dosage: DF, ORAL
     Route: 048
  3. BUPROPION [Suspect]
     Active Substance: BUPROPION
     Indication: PRODUCT USED FOR UNKNOWN INDICATION
     Dosage: DF, ORAL

REACTIONS (5)
  - Cardiac arrest [None]
  - Drug abuse [None]
  - Respiratory arrest [None]
  - Intentional product misuse [None]
  - Poisoning [None]

NARRATIVE: CASE EVENT DATE: 2013
